FAERS Safety Report 17560846 (Version 1)
Quarter: 2020Q1

REPORT INFORMATION
  Report Type: Spontaneous
  Country: US (occurrence: US)
  Receive Date: 20200319
  Receipt Date: 20200319
  Transmission Date: 20200409
  Serious: No
  Sender: FDA-Public Use
  Company Number: None

PATIENT
  Age: 8 Month
  Sex: Female

DRUGS (8)
  1. DURIL SUS 250/5 ML [Concomitant]
  2. ERYTHROMYCIN ETH SUS 400/5 ML [Concomitant]
  3. POLY-VI-SOL DRO / IRON [Concomitant]
  4. FLOVENT HFA AER 220 MCG [Concomitant]
  5. PREOAIR HFA AER [Concomitant]
  6. RANITIDINE SYP 75 MG / 5 ML [Concomitant]
  7. SILDENAFIL. [Suspect]
     Active Substance: SILDENAFIL
     Indication: PULMONARY HYPERTENSION
     Dosage: ?          OTHER FREQUENCY:EVERY 6 HOURS;?
     Route: 048
     Dates: start: 20200114
  8. FAMOTIDINE SUS 40 MG / 5 ML [Concomitant]

REACTIONS (1)
  - Gastrostomy [None]

NARRATIVE: CASE EVENT DATE: 20200312
